FAERS Safety Report 17362746 (Version 2)
Quarter: 2020Q1

REPORT INFORMATION
  Report Type: Spontaneous
  Country: CH (occurrence: CH)
  Receive Date: 20200203
  Receipt Date: 20200204
  Transmission Date: 20200409
  Serious: Yes (Hospitalization, Other)
  Sender: FDA-Public Use
  Company Number: CH-PFIZER INC-2020038619

PATIENT
  Age: 63 Year
  Sex: Male
  Weight: 87.4 kg

DRUGS (19)
  1. EUTHYROX [Concomitant]
     Active Substance: LEVOTHYROXINE SODIUM
     Dosage: 50 UG, 1X/DAY 1-0-0
     Route: 065
  2. CONCOR COR [Interacting]
     Active Substance: BISOPROLOL FUMARATE
     Dosage: 2.5 MG, 1X/DAY
     Route: 048
     Dates: start: 20191206, end: 20191209
  3. TOREM [TORASEMIDE] [Interacting]
     Active Substance: TORSEMIDE
     Dosage: 100 MG, 2X/DAY
     Route: 048
  4. ADEMPAS [Interacting]
     Active Substance: RIOCIGUAT
     Indication: PULMONARY ARTERIAL HYPERTENSION
     Dosage: 2.5 MG, 3X/DAY
     Route: 048
     Dates: start: 201910
  5. OPSUMIT [Interacting]
     Active Substance: MACITENTAN
     Indication: PULMONARY ARTERIAL HYPERTENSION
     Dosage: 10 MG, 1X/DAY
     Route: 065
  6. PANTOZOL [Concomitant]
     Active Substance: PANTOPRAZOLE SODIUM
     Dosage: 40 MG, 1X/DAY 1-0-0
     Route: 065
     Dates: start: 201910
  7. UPTRAVI [Interacting]
     Active Substance: SELEXIPAG
     Indication: PULMONARY ARTERIAL HYPERTENSION
     Dosage: 1.2 MG, 2X/DAY
     Route: 048
     Dates: start: 201904
  8. ASPIRIN CARDIO [Concomitant]
     Active Substance: ASPIRIN
     Dosage: UNK
     Route: 065
  9. METOLAZON [Concomitant]
     Active Substance: METOLAZONE
     Dosage: 2.5 MG, AS NEEDED
     Route: 065
  10. PREDNISON GALEPHARM [Concomitant]
     Active Substance: PREDNISONE
     Dosage: 20 MG, QD
     Route: 065
     Dates: start: 20191105, end: 20191205
  11. TRIATEC (RAMIPRIL) [Suspect]
     Active Substance: RAMIPRIL
     Dosage: 1.25 MG, 1X/DAY
     Route: 048
     Dates: start: 20191206, end: 20191209
  12. ALDACTONE [Interacting]
     Active Substance: SPIRONOLACTONE
     Dosage: 150 MG, 1X/DAY
  13. OPSUMIT [Interacting]
     Active Substance: MACITENTAN
     Dosage: 20 MG, UNK (2X10MG)
  14. VELMETIA [Concomitant]
     Active Substance: METFORMIN\SITAGLIPTIN
     Dosage: 1 DF, 1X/DAY 1-0-0
     Route: 065
     Dates: start: 201903, end: 20191210
  15. METOLAZON [Concomitant]
     Active Substance: METOLAZONE
     Dosage: 2.5 MG, QD
     Route: 065
     Dates: start: 20191210
  16. VENLAFAXIN MEPHA [Concomitant]
     Dosage: 37.5 MG, 1X/DAY 1-0-0
     Route: 065
     Dates: end: 20191206
  17. PREDNISON GALEPHARM [Concomitant]
     Active Substance: PREDNISONE
     Dosage: 10 MG, DAILY
     Dates: start: 20191206
  18. TRIATEC (RAMIPRIL) [Interacting]
     Active Substance: RAMIPRIL
     Dosage: 1.25 MG, 1X/DAY
     Route: 048
     Dates: start: 20191214, end: 20191218
  19. ZYLORIC [Concomitant]
     Active Substance: ALLOPURINOL
     Dosage: 300 MG, 1X/DAY 1-0-0
     Route: 065
     Dates: end: 20191210

REACTIONS (3)
  - Hypotension [Recovered/Resolved]
  - Acute kidney injury [Recovered/Resolved]
  - Drug interaction [Unknown]

NARRATIVE: CASE EVENT DATE: 20191206
